FAERS Safety Report 8559932-5 (Version None)
Quarter: 2012Q3

REPORT INFORMATION
  Report Type: 
  Country: None (occurrence: None)
  Receive Date: 20120802
  Receipt Date: 20120724
  Transmission Date: 20120928
  Serious: Yes (Hospitalization)
  Sender: FDA-Public Use
  Company Number: DE-PFIZER INC-2012185781

PATIENT
  Age: 73 Year
  Sex: Male

DRUGS (4)
  1. PANTOPRAZOLE [Suspect]
     Indication: HELICOBACTER GASTRITIS
     Dosage: UNK
     Dates: end: 20120601
  2. CLARITHROMYCIN [Suspect]
     Indication: HELICOBACTER GASTRITIS
     Dosage: UNK
     Dates: end: 20120601
  3. AMOXICILLIN TRIHYDRATE [Suspect]
     Indication: HELICOBACTER GASTRITIS
     Dosage: UNK
     Dates: end: 20120601
  4. DIPHTHERIA TOX/PERTUSSIS VACC/POLIOMYELITIS VACCINE INACT/TETANUS TOX [Concomitant]
     Indication: IMMUNISATION
     Dosage: UNK
     Dates: start: 20120531, end: 20120531

REACTIONS (1)
  - DRUG ERUPTION [None]
